FAERS Safety Report 16154175 (Version 2)
Quarter: 2019Q2

REPORT INFORMATION
  Report Type: Spontaneous
  Country: DE (occurrence: DE)
  Receive Date: 20190403
  Receipt Date: 20190521
  Transmission Date: 20190711
  Serious: Yes (Life-Threatening)
  Sender: FDA-Public Use
  Company Number: DE-TEVA-2019-DE-1031926

PATIENT
  Age: 71 Year
  Sex: Male
  Weight: 125 kg

DRUGS (2)
  1. METFORMIN [Suspect]
     Active Substance: METFORMIN HYDROCHLORIDE
     Indication: DIABETES MELLITUS
     Dosage: 2 GRAM DAILY; 1G-O-1G
     Route: 048
     Dates: start: 2012, end: 20190224
  2. RAMIPRIL. [Concomitant]
     Active Substance: RAMIPRIL
     Indication: HYPERTENSION
     Dosage: 5MG-0-5MG
     Route: 048
     Dates: start: 2010

REACTIONS (4)
  - Cardiac arrest [Recovered/Resolved]
  - Resuscitation [Recovered/Resolved]
  - Lactic acidosis [Recovering/Resolving]
  - Somnolence [Recovering/Resolving]

NARRATIVE: CASE EVENT DATE: 20190221
